FAERS Safety Report 16917881 (Version 1)
Quarter: 2019Q4

REPORT INFORMATION
  Report Type: Spontaneous
  Country: SG (occurrence: SG)
  Receive Date: 20191015
  Receipt Date: 20191015
  Transmission Date: 20200122
  Serious: Yes (Hospitalization)
  Sender: FDA-Public Use
  Company Number: SG-SA-2019SA278079

PATIENT
  Age: 63 Year
  Sex: Male
  Weight: 70.4 kg

DRUGS (7)
  1. GEMCITABINE. [Concomitant]
     Active Substance: GEMCITABINE
     Dosage: 1620 MG, QCY
     Route: 042
     Dates: start: 20190516, end: 20190516
  2. ONDANSETRON [Concomitant]
     Active Substance: ONDANSETRON
     Indication: PREMEDICATION
     Dosage: 8 MG, QCY
     Route: 042
     Dates: start: 20190516, end: 20190516
  3. OXALIPLATIN. [Suspect]
     Active Substance: OXALIPLATIN
     Indication: METASTASES TO MENINGES
     Dosage: 220 MG, QCY
     Route: 042
     Dates: start: 20190516, end: 20190516
  4. DEXAMETHASONE. [Concomitant]
     Active Substance: DEXAMETHASONE
     Indication: PREMEDICATION
     Dosage: 8 MG, QCY
     Route: 042
     Dates: start: 20190516, end: 20190516
  5. GEMCITABINE. [Concomitant]
     Active Substance: GEMCITABINE
     Indication: PREMEDICATION
     Dosage: 1620 MG, QCY
     Route: 042
     Dates: start: 20190516, end: 20190516
  6. DEXAMETHASONE. [Concomitant]
     Active Substance: DEXAMETHASONE
     Dosage: 8 MG, QCY
     Route: 042
     Dates: start: 20190516, end: 20190516
  7. ONDANSETRON [Concomitant]
     Active Substance: ONDANSETRON
     Dosage: 8 MG, QCY
     Route: 042
     Dates: start: 20190516, end: 20190516

REACTIONS (4)
  - Dyspnoea [Recovered/Resolved]
  - Tachycardia [Recovered/Resolved]
  - Chills [Recovered/Resolved]
  - Wheezing [Recovered/Resolved]

NARRATIVE: CASE EVENT DATE: 20190516
